FAERS Safety Report 5168787-0 (Version None)
Quarter: 2006Q4

REPORT INFORMATION
  Report Type: 
  Country: None (occurrence: None)
  Receive Date: 20061211
  Receipt Date: 20061201
  Transmission Date: 20070319
  Serious: Yes (Hospitalization)
  Sender: FDA-Public Use
  Company Number: CH-AMGEN-UK202509

PATIENT
  Age: 32 Year
  Sex: Female

DRUGS (6)
  1. NEUPOGEN [Suspect]
     Indication: CHEMOTHERAPY
     Route: 041
     Dates: start: 20060222, end: 20060505
  2. HOLOXAN [Suspect]
     Route: 041
     Dates: start: 20060215, end: 20060425
  3. ADRIBLASTIN [Suspect]
     Route: 041
     Dates: start: 20060215, end: 20060421
  4. ZOFRAN [Suspect]
     Route: 048
     Dates: start: 20060215, end: 20060426
  5. MESNA [Suspect]
     Route: 041
     Dates: start: 20060215, end: 20060426
  6. SOLU-MEDROL [Suspect]
     Route: 042
     Dates: start: 20060215, end: 20060425

REACTIONS (3)
  - CAESAREAN SECTION [None]
  - DRUG EXPOSURE DURING PREGNANCY [None]
  - PREMATURE LABOUR [None]
